FAERS Safety Report 17700513 (Version 1)
Quarter: 2020Q2

REPORT INFORMATION
  Report Type: Spontaneous
  Country: US (occurrence: US)
  Receive Date: 20200423
  Receipt Date: 20200423
  Transmission Date: 20200714
  Serious: No
  Sender: FDA-Public Use
  Company Number: US-ABBVIE-20K-163-3245772-00

PATIENT
  Sex: Female

DRUGS (1)
  1. ORILISSA [Suspect]
     Active Substance: ELAGOLIX SODIUM
     Indication: ENDOMETRIOSIS
     Route: 048

REACTIONS (14)
  - Nightmare [Unknown]
  - Generalised anxiety disorder [Unknown]
  - Fear [Unknown]
  - Personality disorder [Unknown]
  - Pain [Unknown]
  - Depression [Unknown]
  - Feeling guilty [Unknown]
  - Social anxiety disorder [Unknown]
  - Tobacco abuse [Unknown]
  - Attention deficit hyperactivity disorder [Unknown]
  - Abnormal dreams [Unknown]
  - Anxiety [Unknown]
  - Post-traumatic stress disorder [Unknown]
  - Emotional distress [Unknown]
